FAERS Safety Report 4607132-3 (Version None)
Quarter: 2005Q1

REPORT INFORMATION
  Report Type: 
  Country: None (occurrence: None)
  Receive Date: 20050310
  Receipt Date: 20050301
  Transmission Date: 20050727
  Serious: Yes (Other)
  Sender: FDA-Public Use
  Company Number: 2005040059

PATIENT
  Age: 65 Year
  Sex: Female

DRUGS (6)
  1. PROVERA [Suspect]
     Indication: HORMONE REPLACEMENT THERAPY
     Dosage: SEE IMAGE
     Dates: start: 19930101, end: 19960101
  2. PROVERA [Suspect]
     Indication: HORMONE REPLACEMENT THERAPY
     Dosage: SEE IMAGE
     Dates: start: 19980101, end: 20010101
  3. CONJUGATED ESTROGENS [Suspect]
     Indication: HORMONE REPLACEMENT THERAPY
     Dosage: SEE IMAGE
     Dates: start: 19930101, end: 19960101
  4. CONJUGATED ESTROGENS [Suspect]
     Indication: HORMONE REPLACEMENT THERAPY
     Dosage: SEE IMAGE
     Dates: start: 19980101, end: 20010101
  5. PROVELLA-14 (ESTROGENS CONJUGATED, MEDROXYPROGESTERONE ACETATE) [Suspect]
     Indication: HORMONE REPLACEMENT THERAPY
     Dosage: SEE IMAGE
     Dates: start: 19960101, end: 19980101
  6. PROVELLA-14 (ESTROGENS CONJUGATED, MEDROXYPROGESTERONE ACETATE) [Suspect]
     Indication: HORMONE REPLACEMENT THERAPY
     Dosage: SEE IMAGE
     Dates: start: 20010101, end: 20020101

REACTIONS (1)
  - BREAST CANCER [None]
